FAERS Safety Report 6122624-6 (Version None)
Quarter: 2009Q1

REPORT INFORMATION
  Report Type: 
  Country: None (occurrence: None)
  Receive Date: 20090318
  Receipt Date: 20090311
  Transmission Date: 20090719
  Serious: Yes (Other)
  Sender: FDA-Public Use
  Company Number: JP-BAYER-200910718BYL

PATIENT
  Age: 77 Year
  Sex: Male

DRUGS (4)
  1. ASPIRIN [Suspect]
     Indication: THROMBOSIS PROPHYLAXIS
     Dosage: TOTAL DAILY DOSE: 100 MG  UNIT DOSE: 100 MG
     Route: 048
     Dates: start: 20090223, end: 20090309
  2. LIPITOR [Suspect]
     Indication: HYPERLIPIDAEMIA
     Route: 048
  3. CARNACULIN [Suspect]
     Indication: RETINAL VEIN OCCLUSION
     Route: 048
  4. JOLETHIN [Suspect]
     Indication: RETINAL VEIN OCCLUSION
     Route: 048

REACTIONS (1)
  - ORGANISING PNEUMONIA [None]
